FAERS Safety Report 8229329-6 (Version None)
Quarter: 2012Q1

REPORT INFORMATION
  Report Type: 
  Country: None (occurrence: None)
  Receive Date: 20120322
  Receipt Date: 20120316
  Transmission Date: 20120608
  Serious: Yes (Other)
  Sender: FDA-Public Use
  Company Number: US-PFIZER INC-2008099758

PATIENT
  Sex: Female
  Weight: 83.9 kg

DRUGS (6)
  1. LIPITOR [Suspect]
     Dosage: 80, 1 PO QHS
     Route: 048
  2. PROBIOTICS [Concomitant]
  3. COREG [Concomitant]
     Dosage: 10 MG, 1X/DAY
  4. ASPIRIN [Concomitant]
     Dosage: 325 MG, 1X/DAY
  5. LIPITOR [Suspect]
     Dosage: UNK
     Dates: start: 19991101, end: 20080101
  6. LOVAZA [Concomitant]

REACTIONS (13)
  - HEARING IMPAIRED [None]
  - WEIGHT DECREASED [None]
  - APHAGIA [None]
  - OSTEOPOROSIS [None]
  - CORONARY ARTERY BYPASS [None]
  - NAUSEA [None]
  - GAIT DISTURBANCE [None]
  - BODY HEIGHT DECREASED [None]
  - ASTHENIA [None]
  - FEELING ABNORMAL [None]
  - MALAISE [None]
  - ILL-DEFINED DISORDER [None]
  - MYALGIA [None]
